FAERS Safety Report 18242975 (Version 2)
Quarter: 2020Q4

REPORT INFORMATION
  Report Type: Report from Study
  Country: CZ (occurrence: CZ)
  Receive Date: 20200908
  Receipt Date: 20201023
  Transmission Date: 20210113
  Serious: Yes (Other)
  Sender: FDA-Public Use
  Company Number: CZ-CELGENEUS-CZE-20200900770

PATIENT
  Age: 71 Year
  Sex: Male
  Weight: 82 kg

DRUGS (1)
  1. LUSPATERCEPT. [Suspect]
     Active Substance: LUSPATERCEPT
     Indication: ANAEMIA OF MALIGNANT DISEASE
     Dosage: 1 MILLIGRAM/KILOGRAM
     Route: 058
     Dates: start: 20200203, end: 20200811

REACTIONS (1)
  - Myelodysplastic syndrome [Not Recovered/Not Resolved]
